FAERS Safety Report 9246173 (Version 1)
Quarter: 2013Q2

REPORT INFORMATION
  Report Type: Spontaneous
  Country: US (occurrence: US)
  Receive Date: 20130422
  Receipt Date: 20130422
  Transmission Date: 20140414
  Serious: No
  Sender: FDA-Public Use
  Company Number: US-PFIZER INC-2013125300

PATIENT
  Age: 65 Year
  Sex: Male
  Weight: 68.93 kg

DRUGS (2)
  1. LIPITOR [Suspect]
     Indication: LOW DENSITY LIPOPROTEIN INCREASED
     Dosage: 10 MG, ONCE A DAY
     Route: 048
     Dates: start: 20130226
  2. CIALIS [Concomitant]
     Indication: BENIGN PROSTATIC HYPERPLASIA
     Dosage: 5 MG, ONCE A DAY

REACTIONS (1)
  - Gastrooesophageal reflux disease [Not Recovered/Not Resolved]
